FAERS Safety Report 13458857 (Version 1)
Quarter: 2017Q2

REPORT INFORMATION
  Report Type: Spontaneous
  Country: US (occurrence: US)
  Receive Date: 20170419
  Receipt Date: 20170419
  Transmission Date: 20170830
  Serious: Yes (Other)
  Sender: FDA-Public Use
  Company Number: US-TEVA-761090USA

PATIENT
  Sex: Male

DRUGS (1)
  1. POTASSIUM CHLORIDE. [Suspect]
     Active Substance: POTASSIUM CHLORIDE
     Indication: HEART RATE ABNORMAL
     Route: 065

REACTIONS (2)
  - Choking [Unknown]
  - Product physical issue [Unknown]
